FAERS Safety Report 10388942 (Version 1)
Quarter: 2014Q1

REPORT INFORMATION
  Report Type: Spontaneous
  Country: US (occurrence: None)
  Receive Date: 20140306
  Receipt Date: 20140306
  Transmission Date: 20141002
  Serious: Yes (Hospitalization)
  Sender: FDA-Public Use
  Company Number: 163-21880-13021526

PATIENT
  Age: 61 Year
  Sex: Female

DRUGS (9)
  1. REVLIMID (LENALIDOMIDE) (10 MILLIGRAM, CAPSULES) [Suspect]
     Indication: PLASMA CELL MYELOMA
     Dosage: 10 MG, 21 IN 21 D, PO
     Route: 048
     Dates: start: 20120625
  2. CELEXA (CITALOPRAM HYDROBROMIDE) [Concomitant]
  3. CENTRUM [Concomitant]
  4. FLONASE (FLUTICASPME PROPIONATE) [Concomitant]
  5. IRON [Concomitant]
  6. METRONIDAZOLE [Concomitant]
  7. PROTONIX [Concomitant]
  8. PULMICORT (BUDESONIDE) [Concomitant]
  9. SYNTHROID (LEVOTHYROXINE SODIUM) [Concomitant]

REACTIONS (1)
  - Clostridium difficile infection [None]
